FAERS Safety Report 12984722 (Version 4)
Quarter: 2018Q1

REPORT INFORMATION
  Report Type: Spontaneous
  Country: IE (occurrence: IE)
  Receive Date: 20161129
  Receipt Date: 20180117
  Transmission Date: 20180508
  Serious: Yes (Other)
  Sender: FDA-Public Use
  Company Number: IE-MYLANLABS-2016M1051818

PATIENT
  Age: 46 Year
  Sex: Female

DRUGS (1)
  1. CLOZARIL [Suspect]
     Active Substance: CLOZAPINE
     Indication: SCHIZOPHRENIA
     Dosage: UNK
     Route: 048
     Dates: start: 20161101, end: 20180109

REACTIONS (7)
  - Asthenia [Unknown]
  - Lower respiratory tract infection [Unknown]
  - Neutrophil count decreased [Recovered/Resolved]
  - Haemoglobin decreased [Recovered/Resolved]
  - Viral infection [Unknown]
  - Influenza like illness [Unknown]
  - White blood cell count decreased [Recovered/Resolved]

NARRATIVE: CASE EVENT DATE: 201611
